FAERS Safety Report 4663614-X (Version None)
Quarter: 2005Q2

REPORT INFORMATION
  Report Type: 
  Country: None (occurrence: None)
  Receive Date: 20050517
  Receipt Date: 20050509
  Transmission Date: 20051028
  Serious: Yes (Other)
  Sender: FDA-Public Use
  Company Number: AU-GLAXOSMITHKLINE-B0380447A

PATIENT
  Age: 42 Month
  Sex: Female
  Weight: 15 kg

DRUGS (1)
  1. CHILDREN'S PANADOL COLOURFREE SUSPENSION 1-5 YEARS [Suspect]
     Route: 048

REACTIONS (2)
  - ACCIDENTAL OVERDOSE [None]
  - DRUG LEVEL INCREASED [None]
